FAERS Safety Report 7961171-3 (Version None)
Quarter: 2011Q4

REPORT INFORMATION
  Report Type: 
  Country: None (occurrence: None)
  Receive Date: 20111207
  Receipt Date: 20111129
  Transmission Date: 20120403
  Serious: Yes (Hospitalization, Other)
  Sender: FDA-Public Use
  Company Number: US-PFIZER INC-2011292129

PATIENT
  Sex: Female
  Weight: 113 kg

DRUGS (11)
  1. WELCHOL [Concomitant]
     Dosage: 625 MG, 3X/DAY
     Route: 048
  2. PRILOSEC [Concomitant]
     Dosage: 20 MG DAILY
  3. JANUVIA [Concomitant]
     Dosage: UNK, DAILY
  4. CHANTIX [Suspect]
     Dosage: UNK
     Dates: end: 20080301
  5. TOPROL-XL [Concomitant]
     Dosage: 25 MG, 1X/DAY
     Route: 048
  6. FLEXERIL [Concomitant]
     Dosage: 10 MG, 3X/DAY AS NEEDED
     Route: 048
  7. ESTRATEST [Concomitant]
     Indication: HOT FLUSH
     Dosage: UNK, DAILY
  8. TYLOX [Concomitant]
     Indication: PAIN
     Dosage: UNK, AS NEEDED
     Route: 048
  9. QUININE SULFATE [Concomitant]
     Dosage: 260 MG, 1X/DAY (AT BEDTIME)
     Route: 048
  10. ASPIRIN [Concomitant]
     Dosage: 81 MG, 1X/DAY
  11. CADUET [Concomitant]
     Dosage: 5/10MG DAILY

REACTIONS (12)
  - MITRAL VALVE INCOMPETENCE [None]
  - CULTURE URINE POSITIVE [None]
  - AORTIC VALVE SCLEROSIS [None]
  - CEREBRAL INFARCTION [None]
  - CORONARY ARTERY DISEASE [None]
  - AORTIC VALVE INCOMPETENCE [None]
  - BLOOD GLUCOSE INCREASED [None]
  - CARDIOMYOPATHY [None]
  - BLOOD PRESSURE INCREASED [None]
  - HEART RATE INCREASED [None]
  - TRICUSPID VALVE INCOMPETENCE [None]
  - MITRAL VALVE DISEASE [None]
